FAERS Safety Report 10044971 (Version 1)
Quarter: 2014Q1

REPORT INFORMATION
  Report Type: Spontaneous
  Country: FR (occurrence: None)
  Receive Date: 20140326
  Receipt Date: 20140326
  Transmission Date: 20141002
  Serious: Yes (Hospitalization)
  Sender: FDA-Public Use
  Company Number: 2014AP002281

PATIENT
  Age: 15 Year
  Sex: Female

DRUGS (8)
  1. MYCOPHENOLATE MOFETIL (MCOPHENOLATE MOFETIL) [Suspect]
  2. FOSCARNET (NO PREF. NAME) [Suspect]
  3. PREDNISONE (PREDNISOLONE) [Concomitant]
  4. VORICONAZOLE (VORICONAZOLE) [Concomitant]
  5. PHENOXYMETHYL PENICILLIN (PHENOXYMETHYLPENICILLIN) [Concomitant]
  6. OMEPRZOLE (OMEPRAZOLE) [Concomitant]
  7. DEFEROXAMINE (DEFEROXAMINE) [Concomitant]
  8. FOSCARNET (FOSCARNET) [Concomitant]

REACTIONS (2)
  - Oesophageal ulcer [None]
  - Oesophagitis haemorrhagic [None]
